FAERS Safety Report 16292167 (Version 1)
Quarter: 2019Q2

REPORT INFORMATION
  Report Type: Spontaneous
  Country: CN (occurrence: CN)
  Receive Date: 20190509
  Receipt Date: 20190509
  Transmission Date: 20190711
  Serious: Yes (Hospitalization, Other)
  Sender: FDA-Public Use
  Company Number: CN-PFIZER INC-2019194677

PATIENT
  Age: 34 Year
  Sex: Male
  Weight: 82 kg

DRUGS (2)
  1. CELEBREX [Suspect]
     Active Substance: CELECOXIB
     Indication: ANALGESIC THERAPY
     Dosage: 200 MG, 1X/DAY
     Route: 048
     Dates: start: 20180417, end: 20190418
  2. NEOCYSPIN [Suspect]
     Active Substance: CYCLOSPORINE
     Indication: IMMUNE SYSTEM DISORDER
     Dosage: 75 MG, 2X/DAY
     Route: 048
     Dates: start: 20190405, end: 20190418

REACTIONS (1)
  - Liver injury [Recovering/Resolving]

NARRATIVE: CASE EVENT DATE: 20190419
